FAERS Safety Report 21142665 (Version 1)
Quarter: 2022Q3

REPORT INFORMATION
  Report Type: Spontaneous
  Country: US (occurrence: None)
  Receive Date: 20220728
  Receipt Date: 20220728
  Transmission Date: 20221027
  Serious: Yes (Hospitalization)
  Sender: FDA-Public Use
  Company Number: None

PATIENT
  Age: 72 Year
  Sex: Female
  Weight: 89.1 kg

DRUGS (11)
  1. PAXLOVID [Suspect]
     Active Substance: NIRMATRELVIR\RITONAVIR
     Indication: COVID-19
     Dosage: FREQUENCY : TWICE A DAY;?
     Route: 048
     Dates: start: 20220725, end: 20220726
  2. enalapril 5mg PO qd [Concomitant]
  3. aspirin 81mg PO qd [Concomitant]
  4. Escitalopram 5mg PO qd [Concomitant]
  5. famotidine 40mg PO qd [Concomitant]
  6. fluticasone 50mcg/inhalation 1 spray daily to nose [Concomitant]
  7. lactulose 10g/15mL liquid three times a day [Concomitant]
  8. omega-3 1000mg PO twice daily [Concomitant]
  9. quetiapine 150mg daily [Concomitant]
  10. simvastatin 20mg qhs PO [Concomitant]
     Dates: end: 20220725
  11. valproic acid 250mg PO bid [Concomitant]

REACTIONS (6)
  - Disorientation [None]
  - Dysarthria [None]
  - Gait inability [None]
  - Gait disturbance [None]
  - Urinary incontinence [None]
  - Asthenia [None]

NARRATIVE: CASE EVENT DATE: 20220726
